FAERS Safety Report 8575671-9 (Version None)
Quarter: 2012Q3

REPORT INFORMATION
  Report Type: 
  Country: None (occurrence: None)
  Receive Date: 20120807
  Receipt Date: 20120802
  Transmission Date: 20120928
  Serious: Yes (Other)
  Sender: FDA-Public Use
  Company Number: PHHY2012JP047787

PATIENT
  Age: 61 Year
  Sex: Female
  Weight: 45.15 kg

DRUGS (2)
  1. SANDOSTATIN LAR [Suspect]
     Indication: GROWTH HORMONE-PRODUCING PITUITARY TUMOUR
     Dosage: UNK
     Route: 030
  2. AFINITOR [Suspect]
     Indication: PANCREATIC NEUROENDOCRINE TUMOUR
     Dosage: UNK
     Dates: start: 20110101

REACTIONS (7)
  - NEOPLASM PROGRESSION [None]
  - HYPERGLYCAEMIA [None]
  - INTERSTITIAL LUNG DISEASE [None]
  - GENERAL PHYSICAL HEALTH DETERIORATION [None]
  - TONGUE PIGMENTATION [None]
  - GROWTH HORMONE-PRODUCING PITUITARY TUMOUR [None]
  - SWELLING FACE [None]
